FAERS Safety Report 5672835-9 (Version None)
Quarter: 2008Q1

REPORT INFORMATION
  Report Type: 
  Country: None (occurrence: None)
  Receive Date: 20080319
  Receipt Date: 20071127
  Transmission Date: 20080703
  Serious: No
  Sender: FDA-Public Use
  Company Number: US-KINGPHARMUSA00001-K200701527

PATIENT

DRUGS (7)
  1. ALTACE [Suspect]
     Dosage: 5 MG, QD
     Route: 048
     Dates: start: 20060901, end: 20070901
  2. ADVAIR DISKUS 100/50 [Concomitant]
     Indication: ASTHMA
     Dosage: 250/50, QD
  3. ALBUTEROL [Concomitant]
     Indication: ASTHMA
     Dosage: UNK, PRN
  4. TRIAMTEREN [Concomitant]
     Dosage: 37.5 MG, QD
     Route: 048
  5. LIPITOR [Concomitant]
     Indication: HYPERCHOLESTEROLAEMIA
     Dosage: 10 MG, QD
     Route: 048
  6. ISOSORBIDE DINITRATE [Concomitant]
     Dosage: 120 MG, QD
  7. XALATAN [Concomitant]
     Dosage: ONE DROP NIGHTLY, RIGHT EYE
     Route: 047

REACTIONS (4)
  - ALOPECIA [None]
  - ARTHRALGIA [None]
  - MYALGIA [None]
  - SWOLLEN TONGUE [None]
